FAERS Safety Report 15570765 (Version 2)
Quarter: 2018Q4

REPORT INFORMATION
  Report Type: Spontaneous
  Country: SI (occurrence: SI)
  Receive Date: 20181031
  Receipt Date: 20181116
  Transmission Date: 20190205
  Serious: Yes (Other)
  Sender: FDA-Public Use
  Company Number: SI-BAYER-2018-196203

PATIENT

DRUGS (2)
  1. ASPIRIN PROTECT 100 MG [Suspect]
     Active Substance: ASPIRIN
     Dosage: UNK
  2. STATIN [Concomitant]
     Active Substance: UNSPECIFIED INGREDIENT
     Dosage: UNK

REACTIONS (2)
  - Cardiac dysfunction [None]
  - Akinesia [None]
